FAERS Safety Report 15328989 (Version 1)
Quarter: 2018Q3

REPORT INFORMATION
  Report Type: Spontaneous
  Country: IT (occurrence: IT)
  Receive Date: 20180829
  Receipt Date: 20180829
  Transmission Date: 20181010
  Serious: Yes (Other)
  Sender: FDA-Public Use
  Company Number: IT-SUN PHARMACEUTICAL INDUSTRIES LTD-2018RR-182769

PATIENT
  Age: 17 Year
  Sex: Male

DRUGS (8)
  1. BACLOFEN. [Suspect]
     Active Substance: BACLOFEN
     Indication: PNEUMONITIS
     Dosage: 1 DF, QD
     Route: 065
  2. PANTORC [Concomitant]
     Active Substance: PANTOPRAZOLE SODIUM
     Indication: PRODUCT USED FOR UNKNOWN INDICATION
     Dosage: ()
     Route: 065
  3. URBASON [Concomitant]
     Active Substance: METHYLPREDNISOLONE
     Indication: PRODUCT USED FOR UNKNOWN INDICATION
     Dosage: ()
     Route: 065
  4. MERREM [Suspect]
     Active Substance: MEROPENEM
     Indication: PNEUMONITIS
     Dosage: 800 MG, DAILY
     Route: 065
  5. DIPRIVAN [Suspect]
     Active Substance: PROPOFOL
     Indication: PNEUMONITIS
     Dosage: IN TOTAL
     Route: 065
     Dates: start: 20180222
  6. ZYVOXID [Suspect]
     Active Substance: LINEZOLID
     Indication: PNEUMONITIS
     Dosage: 600 MG, DAILY
     Route: 042
     Dates: start: 20180222
  7. CLEXANE [Suspect]
     Active Substance: ENOXAPARIN SODIUM
     Indication: PRODUCT USED FOR UNKNOWN INDICATION
     Dosage: 2000 KIU, DAILY
     Route: 058
     Dates: start: 20180222
  8. KLACID [Suspect]
     Active Substance: CLARITHROMYCIN
     Indication: PNEUMONITIS
     Dosage: 400 MG, DAILY
     Route: 065

REACTIONS (3)
  - Aspartate aminotransferase increased [Recovering/Resolving]
  - Gamma-glutamyltransferase increased [Recovering/Resolving]
  - Alanine aminotransferase increased [Recovering/Resolving]

NARRATIVE: CASE EVENT DATE: 20180226
